FAERS Safety Report 21460527 (Version 1)
Quarter: 2022Q4

REPORT INFORMATION
  Report Type: Spontaneous
  Country: US (occurrence: US)
  Receive Date: 20221015
  Receipt Date: 20221015
  Transmission Date: 20230112
  Serious: No
  Sender: FDA-Public Use
  Company Number: US-SA-SAC20221013001736

PATIENT
  Age: 49 Year
  Sex: Female

DRUGS (5)
  1. KEVZARA [Suspect]
     Active Substance: SARILUMAB
     Indication: Systemic lupus erythematosus
     Dosage: 200 MG, QOW
     Route: 058
  2. FOLIC ACID [Concomitant]
     Active Substance: FOLIC ACID
  3. METHOTREXATE [Concomitant]
     Active Substance: METHOTREXATE
  4. ONDANSETRON [Concomitant]
     Active Substance: ONDANSETRON
  5. HYDROXYCHLOROQUINE [Concomitant]
     Active Substance: HYDROXYCHLOROQUINE

REACTIONS (8)
  - Dizziness [Unknown]
  - Headache [Unknown]
  - Neck pain [Unknown]
  - Anxiety [Unknown]
  - Memory impairment [Unknown]
  - COVID-19 [Unknown]
  - Hypoaesthesia [Unknown]
  - Paraesthesia [Unknown]

NARRATIVE: CASE EVENT DATE: 20211201
